FAERS Safety Report 7476251-9 (Version None)
Quarter: 2011Q2

REPORT INFORMATION
  Report Type: 
  Country: None (occurrence: None)
  Receive Date: 20110512
  Receipt Date: 20110225
  Transmission Date: 20111010
  Serious: Yes (Other)
  Sender: FDA-Public Use
  Company Number: PHHY2011CH10018

PATIENT
  Age: 73 Year
  Sex: Male

DRUGS (1)
  1. CLOZAPINE [Suspect]
     Dosage: 19 G, UNK

REACTIONS (7)
  - DELIRIUM [None]
  - TOXICITY TO VARIOUS AGENTS [None]
  - AGITATION [None]
  - DISORIENTATION [None]
  - COMA [None]
  - CONVULSION [None]
  - ANTIPSYCHOTIC DRUG LEVEL INCREASED [None]
